FAERS Safety Report 11745877 (Version 1)
Quarter: 2015Q4

REPORT INFORMATION
  Report Type: Spontaneous
  Country: GB (occurrence: GB)
  Receive Date: 20151117
  Receipt Date: 20151117
  Transmission Date: 20160304
  Serious: Yes (Other)
  Sender: FDA-Public Use
  Company Number: PHFR2014GB007484

PATIENT
  Sex: Male

DRUGS (1)
  1. ZOMETA [Suspect]
     Active Substance: ZOLEDRONIC ACID
     Indication: PRODUCT USED FOR UNKNOWN INDICATION
     Dosage: 3.5 MG, UNK
     Route: 065

REACTIONS (21)
  - Pollakiuria [Not Recovered/Not Resolved]
  - Pain [Unknown]
  - Cough [Unknown]
  - Pain in extremity [Unknown]
  - Productive cough [Unknown]
  - Constipation [Unknown]
  - Benign breast neoplasm [Unknown]
  - Insomnia [Not Recovered/Not Resolved]
  - Tongue biting [Unknown]
  - Oral candidiasis [Unknown]
  - Headache [Unknown]
  - Bronchiectasis [Unknown]
  - Blood creatinine increased [Unknown]
  - Neuropathy peripheral [Not Recovered/Not Resolved]
  - Incorrect dose administered [Unknown]
  - Tremor [Unknown]
  - Fatigue [Not Recovered/Not Resolved]
  - Poor quality sleep [Not Recovered/Not Resolved]
  - Sputum discoloured [Unknown]
  - Arthralgia [Not Recovered/Not Resolved]
  - Back pain [Not Recovered/Not Resolved]
